FAERS Safety Report 5988765-9 (Version None)
Quarter: 2008Q4

REPORT INFORMATION
  Report Type: 
  Country: None (occurrence: None)
  Receive Date: 20081210
  Receipt Date: 20081205
  Transmission Date: 20090506
  Serious: Yes (Life-Threatening, Hospitalization, Other)
  Sender: FDA-Public Use
  Company Number: PHHY2008TW30053

PATIENT
  Sex: Female
  Weight: 60 kg

DRUGS (1)
  1. LAMISIL [Suspect]
     Indication: ONYCHOMYCOSIS
     Dosage: 250 MG, QD
     Route: 048
     Dates: start: 20081108, end: 20081120

REACTIONS (5)
  - ANAEMIA [None]
  - MENORRHAGIA [None]
  - NAUSEA [None]
  - THROMBOCYTOPENIA [None]
  - VOMITING [None]
